FAERS Safety Report 18116787 (Version 1)
Quarter: 2020Q3

REPORT INFORMATION
  Report Type: Other
  Country: MT (occurrence: MT)
  Receive Date: 20200806
  Receipt Date: 20200806
  Transmission Date: 20201103
  Serious: Yes (Other)
  Sender: FDA-Public Use
  Company Number: MT-INNOGENIX, LLC-2088224

PATIENT
  Age: 4 Month
  Sex: Female

DRUGS (1)
  1. PROPRANOLOL HYDROCHLORIDE. [Suspect]
     Active Substance: PROPRANOLOL HYDROCHLORIDE
     Indication: INFANTILE HAEMANGIOMA
     Route: 065

REACTIONS (3)
  - Infantile haemangioma [Recovered/Resolved]
  - Off label use [Unknown]
  - Bacterascites [Recovered/Resolved]
